FAERS Safety Report 4370864-9 (Version None)
Quarter: 2004Q2

REPORT INFORMATION
  Report Type: 
  Country: None (occurrence: None)
  Receive Date: 20040601
  Receipt Date: 20040520
  Transmission Date: 20050107
  Serious: Yes (Death)
  Sender: FDA-Public Use
  Company Number: 04MOR0066

PATIENT
  Age: 85 Year
  Sex: Male

DRUGS (4)
  1. AGGRASTAT [Suspect]
     Dosage: INTRAVENOUS
     Route: 042
     Dates: start: 20040514, end: 20040515
  2. ASPIRIN LYSINE [Concomitant]
  3. CLOPIDOGREL BISULFATE (CLOPIDOGREL) [Concomitant]
  4. ENOXAPARIN SODIUM [Concomitant]

REACTIONS (1)
  - VENTRICULAR FIBRILLATION [None]
